FAERS Safety Report 7063377-7 (Version None)
Quarter: 2010Q4

REPORT INFORMATION
  Report Type: 
  Country: None (occurrence: None)
  Receive Date: 20101026
  Receipt Date: 20100714
  Transmission Date: 20110411
  Serious: No
  Sender: FDA-Public Use
  Company Number: US-PFIZER INC-2010089301

PATIENT
  Sex: Female
  Weight: 90.703 kg

DRUGS (5)
  1. LIPITOR [Suspect]
     Indication: BLOOD CHOLESTEROL INCREASED
     Dosage: 40 MG, 1X/DAY
     Route: 048
  2. DIGOXIN [Concomitant]
     Indication: VENTRICULAR TACHYCARDIA
     Dosage: 0.25 MG, 1X/DAY
     Route: 048
  3. SERTRALINE HYDROCHLORIDE [Concomitant]
     Indication: AFFECT LABILITY
     Dosage: 50 MG, 1X/DAY
     Route: 048
     Dates: start: 20030101
  4. ESTROGENS CONJUGATED [Concomitant]
     Indication: HORMONE REPLACEMENT THERAPY
     Dosage: 0.45 MG, 1X/DAY
     Route: 048
  5. ACETYLSALICYLIC ACID [Concomitant]
     Indication: CARDIAC DISORDER
     Dosage: 81 MG, 1X/DAY
     Route: 048

REACTIONS (2)
  - PRODUCT ODOUR ABNORMAL [None]
  - PRODUCT TASTE ABNORMAL [None]
